FAERS Safety Report 4305303-7 (Version None)
Quarter: 2004Q1

REPORT INFORMATION
  Report Type: 
  Country: None (occurrence: None)
  Receive Date: 20040226
  Receipt Date: 20030331
  Transmission Date: 20041129
  Serious: No
  Sender: FDA-Public Use
  Company Number: US-BRISTOL-MYERS SQUIBB COMPANY-12226577

PATIENT
  Age: 56 Year
  Sex: Female
  Weight: 74 kg

DRUGS (8)
  1. TAXOL [Suspect]
     Indication: NON-SMALL CELL LUNG CANCER
     Route: 042
     Dates: start: 20030331, end: 20030331
  2. DIPHENHYDRAMINE HCL [Concomitant]
     Indication: PREMEDICATION
     Dosage: 30 MINUTES PRIOR TO PACLITAXEL INFUSION
     Route: 042
     Dates: start: 20030331
  3. RANITIDINE [Concomitant]
     Indication: PREMEDICATION
     Dosage: 30 MINUTES PRIOR TO PACLITAXEL INFUSION
     Route: 042
     Dates: start: 20030331
  4. DEXAMETHASONE [Concomitant]
     Indication: PREMEDICATION
     Dosage: 30 MINUTES PRIOR TO PACLITAXEL INFUSION
     Route: 042
     Dates: start: 20030331
  5. ASPIRIN [Concomitant]
  6. ATENOLOL [Concomitant]
  7. IRON [Concomitant]
  8. TYLENOL W/ CODEINE NO. 3 [Concomitant]

REACTIONS (1)
  - HYPERSENSITIVITY [None]
